FAERS Safety Report 9851981 (Version 1)
Quarter: 2013Q4

REPORT INFORMATION
  Report Type: Spontaneous
  Country: US (occurrence: None)
  Receive Date: 20131127
  Receipt Date: 20131127
  Transmission Date: 20140711
  Serious: Yes (Other)
  Sender: FDA-Public Use
  Company Number: 224437LEO

PATIENT
  Age: 69 Year
  Sex: Female

DRUGS (1)
  1. PICATO [Suspect]
     Route: 061
     Dates: start: 20131024, end: 20131026

REACTIONS (5)
  - Application site erythema [None]
  - Application site swelling [None]
  - Application site ulcer [None]
  - Eye swelling [None]
  - Drug administered at inappropriate site [None]
